FAERS Safety Report 16688849 (Version 1)
Quarter: 2019Q4

REPORT INFORMATION
  Report Type: Spontaneous
  Country: US (occurrence: US)
  Receive Date: 20190809
  Receipt Date: 20190809
  Transmission Date: 20200122
  Serious: No
  Sender: FDA-Public Use
  Company Number: None

PATIENT
  Age: 53 Year
  Sex: Male

DRUGS (1)
  1. TELMISARTAN/AMLODIPINE [Suspect]
     Active Substance: AMLODIPINE\TELMISARTAN
     Route: 048
     Dates: start: 20190729, end: 20190806

REACTIONS (3)
  - Heart rate increased [None]
  - Malaise [None]
  - Dizziness [None]

NARRATIVE: CASE EVENT DATE: 20190729
